FAERS Safety Report 8071646-7 (Version None)
Quarter: 2012Q1

REPORT INFORMATION
  Report Type: 
  Country: None (occurrence: None)
  Receive Date: 20120125
  Receipt Date: 20120108
  Transmission Date: 20120608
  Serious: Yes (Other)
  Sender: FDA-Public Use
  Company Number: IL-ELI_LILLY_AND_COMPANY-IL201201002130

PATIENT
  Age: 42 Year
  Sex: Male

DRUGS (12)
  1. GLUCOMIN [Concomitant]
     Dosage: 850 MG, BID
     Route: 048
     Dates: start: 20060322
  2. LIPITOR [Concomitant]
     Dosage: 40 MG, QD
     Route: 048
     Dates: start: 20070905
  3. FERROGRAD FOLIC [Concomitant]
     Dosage: UNK, QD
     Route: 048
     Dates: start: 20090111
  4. LANTON [Concomitant]
     Dosage: 30 MG, BID
     Route: 048
     Dates: start: 20110112
  5. FUROSEMIDE [Concomitant]
     Dosage: 20 MG, QD
     Route: 048
     Dates: start: 20060322
  6. CIALIS [Suspect]
     Indication: ERECTILE DYSFUNCTION
     Dosage: 5 MG, QD
     Route: 048
     Dates: start: 20110814
  7. CARDILOC [Concomitant]
     Dosage: 2.5 MG, QD
     Route: 048
     Dates: start: 20071008
  8. MEGA B [Concomitant]
     Dosage: 1000 MG, QD
     Route: 048
     Dates: start: 20060322
  9. CARTIA                             /00002701/ [Concomitant]
     Dosage: 100 MG, QD
     Route: 048
     Dates: start: 20060322
  10. CILAZAPRIL [Concomitant]
     Dosage: 5 MG, QD
     Route: 048
     Dates: start: 20070604
  11. NOVORAPID [Concomitant]
     Dosage: 85 U, QD
     Route: 058
     Dates: start: 20060322
  12. FOLIC ACID [Concomitant]
     Dosage: 5 MG, QD
     Route: 048
     Dates: start: 20120102

REACTIONS (1)
  - OPTIC ISCHAEMIC NEUROPATHY [None]
